FAERS Safety Report 6278060-5 (Version None)
Quarter: 2009Q3

REPORT INFORMATION
  Report Type: 
  Country: None (occurrence: None)
  Receive Date: 20090722
  Receipt Date: 20090710
  Transmission Date: 20100115
  Serious: Yes (Other)
  Sender: FDA-Public Use
  Company Number: PHHY2009GB14867

PATIENT
  Sex: Female

DRUGS (2)
  1. TEGRETOL [Suspect]
     Dosage: 4 DF, QD
     Dates: start: 19991216
  2. CARBAMAZEPINE [Suspect]
     Dosage: 3 DF, BID
     Dates: start: 19991019

REACTIONS (5)
  - CHOLECYSTITIS [None]
  - DRUG EXPOSURE DURING PREGNANCY [None]
  - EAR PAIN [None]
  - GALLBLADDER PAIN [None]
  - PHARYNGITIS [None]
